FAERS Safety Report 7660539-2 (Version None)
Quarter: 2011Q3

REPORT INFORMATION
  Report Type: 
  Country: None (occurrence: None)
  Receive Date: 20110805
  Receipt Date: 20110728
  Transmission Date: 20111222
  Serious: Yes (Hospitalization, Other)
  Sender: FDA-Public Use
  Company Number: US-RB-015717-10

PATIENT
  Age: 68 Year
  Sex: Female

DRUGS (9)
  1. REMERON [Concomitant]
     Indication: INSOMNIA
     Route: 065
  2. SUBOXONE [Suspect]
     Indication: PRODUCT USED FOR UNKNOWN INDICATION
     Route: 060
     Dates: start: 20100601, end: 20110404
  3. PERCOCET [Suspect]
     Indication: PRODUCT USED FOR UNKNOWN INDICATION
     Dosage: DOSING INFORMATION UNKNOWN
     Route: 065
  4. REMERON [Concomitant]
     Indication: DEPRESSION
     Route: 065
  5. SUBOXONE [Suspect]
     Indication: DRUG DEPENDENCE
     Route: 060
     Dates: start: 20090501, end: 20090801
  6. SUBOXONE [Suspect]
     Route: 060
     Dates: start: 20110601
  7. SUBOXONE [Suspect]
     Indication: PAIN
     Route: 060
     Dates: start: 20091101, end: 20100601
  8. SUBOXONE [Suspect]
     Indication: DRUG DEPENDENCE
     Dosage: SUBLINGUAL FILM; 24-32 MG DAILY
     Route: 060
     Dates: start: 20100601, end: 20110401
  9. SUBOXONE [Suspect]
     Indication: PAIN
     Dosage: SUBLINGUAL FILM; 24-32 MG DAILY
     Route: 060
     Dates: start: 20100601, end: 20110401

REACTIONS (17)
  - THROMBOSIS [None]
  - OROPHARYNGEAL PAIN [None]
  - SUBSTANCE ABUSE [None]
  - INFLUENZA [None]
  - DRUG DEPENDENCE [None]
  - LIMB INJURY [None]
  - PYREXIA [None]
  - PAIN [None]
  - NAUSEA [None]
  - ARTHRALGIA [None]
  - DEPRESSION [None]
  - INFLAMMATION [None]
  - DEPRESSED MOOD [None]
  - CRYING [None]
  - OFF LABEL USE [None]
  - INGROWING NAIL [None]
  - GANGRENE [None]
